FAERS Safety Report 4439961-3 (Version None)
Quarter: 2004Q3

REPORT INFORMATION
  Report Type: 
  Country: None (occurrence: None)
  Receive Date: 20040831
  Receipt Date: 20040817
  Transmission Date: 20050211
  Serious: Yes (Hospitalization)
  Sender: FDA-Public Use
  Company Number: 2004229284CH

PATIENT
  Sex: Male

DRUGS (4)
  1. VINCRISTINE [Suspect]
     Indication: TONGUE NEOPLASM
     Dates: start: 20040503, end: 20040602
  2. DOXORUBICIN HCL [Suspect]
     Indication: TONGUE NEOPLASM
     Dates: start: 20040503, end: 20040602
  3. CYCLOPHOSPHAMIDE [Suspect]
     Indication: TONGUE NEOPLASM
     Dates: start: 20040503, end: 20040602
  4. MABTHERA (RITUXIMAB) [Suspect]
     Indication: TONGUE NEOPLASM
     Dates: start: 20040503, end: 20040602

REACTIONS (6)
  - ALVEOLITIS [None]
  - FEBRILE NEUTROPENIA [None]
  - LEUKOPENIA [None]
  - ORAL CANDIDIASIS [None]
  - PHARYNGOLARYNGEAL PAIN [None]
  - RESPIRATORY FAILURE [None]
